FAERS Safety Report 5127833-0 (Version None)
Quarter: 2006Q4

REPORT INFORMATION
  Report Type: 
  Country: None (occurrence: None)
  Receive Date: 20061016
  Receipt Date: 20061011
  Transmission Date: 20070319
  Serious: Yes (Other)
  Sender: FDA-Public Use
  Company Number: US-PURDUE-USA_2006_0025367

PATIENT
  Age: 53 Year
  Sex: Male

DRUGS (2)
  1. OXYCONTIN [Suspect]
     Indication: DRUG ABUSER
     Dosage: UNK, UNK
  2. ALCOHOL [Suspect]
     Indication: ALCOHOLISM
     Dosage: UNK, UNK

REACTIONS (3)
  - ALCOHOL POISONING [None]
  - INTENTIONAL SELF-INJURY [None]
  - PHYSICAL ASSAULT [None]
